FAERS Safety Report 6305833-2 (Version None)
Quarter: 2009Q3

REPORT INFORMATION
  Report Type: 
  Country: None (occurrence: None)
  Receive Date: 20090812
  Receipt Date: 20090804
  Transmission Date: 20100115
  Serious: Yes (Death, Hospitalization)
  Sender: FDA-Public Use
  Company Number: EG-ELI_LILLY_AND_COMPANY-EG200809005911

PATIENT
  Sex: Male
  Weight: 55 kg

DRUGS (7)
  1. PEMETREXED [Suspect]
     Indication: NON-SMALL CELL LUNG CANCER
     Dosage: 500 MG/M2, (700 MG)
     Route: 042
     Dates: start: 20080731
  2. CISPLATIN [Suspect]
     Indication: NON-SMALL CELL LUNG CANCER
     Dosage: 75 MG/M2 (105 MG), OTHER
     Route: 042
     Dates: start: 20080731
  3. FOLIC ACID [Concomitant]
     Indication: SUPPLEMENTATION THERAPY
     Dosage: 1500 UG, DAILY (1/D)
     Route: 048
     Dates: start: 20080724, end: 20080921
  4. VITAMIN B-12 [Concomitant]
     Indication: SUPPLEMENTATION THERAPY
     Dosage: 1000 UG, UNKNOWN
     Route: 042
     Dates: start: 20080724, end: 20080904
  5. DEXAMETHASONE [Concomitant]
     Indication: SUPPLEMENTATION THERAPY
     Dosage: 5 MG, 2/D
     Route: 048
     Dates: start: 20080730, end: 20080801
  6. DEXAMETHASONE [Concomitant]
     Dosage: 5 MG, 2/D
     Route: 048
     Dates: start: 20080820, end: 20080822
  7. DEXAMETHASONE [Concomitant]
     Dosage: 5 MG, 2/D
     Route: 048
     Dates: start: 20080913, end: 20080915

REACTIONS (3)
  - CIRCULATORY COLLAPSE [None]
  - DIARRHOEA [None]
  - VOMITING [None]
